FAERS Safety Report 15332274 (Version 1)
Quarter: 2018Q4

REPORT INFORMATION
  Report Type: Spontaneous
  Country: US (occurrence: US)
  Receive Date: 20180829
  Receipt Date: 20180829
  Transmission Date: 20190204
  Serious: No
  Sender: FDA-Public Use
  Company Number: US-JNJFOC-20180805164

PATIENT
  Age: 91 Year
  Sex: Female

DRUGS (2)
  1. TYLENOL EXTRA STRENGTH [Suspect]
     Active Substance: ACETAMINOPHEN
     Indication: FEELING ABNORMAL
     Dosage: (1000 MG) AT 2130H ON 1-AUG-2018 AND AT 0130H ON 2-AUG-2018 THEN TWO HOURS LATER
     Route: 048
     Dates: start: 20180801
  2. TYLENOL EXTRA STRENGTH [Suspect]
     Active Substance: ACETAMINOPHEN
     Indication: VIRAL INFECTION
     Dosage: (1000 MG) AT 2130H ON 1-AUG-2018 AND AT 0130H ON 2-AUG-2018 THEN TWO HOURS LATER
     Route: 048
     Dates: start: 20180801

REACTIONS (3)
  - Product use in unapproved indication [Unknown]
  - Thinking abnormal [Unknown]
  - Feeling abnormal [Unknown]

NARRATIVE: CASE EVENT DATE: 20180801
